FAERS Safety Report 7593822-X (Version None)
Quarter: 2011Q3

REPORT INFORMATION
  Report Type: 
  Country: None (occurrence: None)
  Receive Date: 20110706
  Receipt Date: 20110623
  Transmission Date: 20111222
  Serious: Yes (Hospitalization)
  Sender: FDA-Public Use
  Company Number: FR-UCBSA-035966

PATIENT
  Sex: Male

DRUGS (8)
  1. PHENYTOIN [Suspect]
     Dosage: UNKNOWN DOSE
     Route: 048
  2. MORPHINE SULFATE [Suspect]
     Dosage: UNKNOWN DOSE
     Route: 048
  3. NEURONTIN [Suspect]
     Dosage: UNKNOWN DOSE
     Route: 048
  4. VIMPAT [Suspect]
     Dosage: UNKNOWN DOSE
     Route: 048
  5. TRAMADOL HYDROCHLORIDE [Suspect]
     Dosage: 200MG, 8 TABLETS
     Route: 048
  6. CLONAZEPAM [Suspect]
     Dosage: 2MG, 10 TABLETS
     Route: 048
  7. MEPRONIZINE [Suspect]
     Dosage: 2-4 UNITS
     Route: 048
  8. ACETAMINOPHEN W/ CODEINE [Suspect]
     Dosage: 12 UNITS
     Route: 048

REACTIONS (4)
  - HEADACHE [None]
  - SLEEP DISORDER [None]
  - SOMNOLENCE [None]
  - DRUG ABUSE [None]
